FAERS Safety Report 7167248-7 (Version None)
Quarter: 2010Q4

REPORT INFORMATION
  Report Type: 
  Country: None (occurrence: None)
  Receive Date: 20101216
  Receipt Date: 20101210
  Transmission Date: 20110411
  Serious: Yes (Other)
  Sender: FDA-Public Use
  Company Number: HU-BAYER-2010-003820

PATIENT
  Sex: Female

DRUGS (1)
  1. MIRENA [Suspect]
     Indication: CONTRACEPTION
     Dosage: 20 MCG/24HR, CONT
     Route: 015
     Dates: start: 20101008, end: 20101109

REACTIONS (5)
  - ABDOMINAL PAIN LOWER [None]
  - CHILLS [None]
  - DEVICE EXPULSION [None]
  - PAIN [None]
  - VAGINAL HAEMORRHAGE [None]
